FAERS Safety Report 12201096 (Version 1)
Quarter: 2016Q1

REPORT INFORMATION
  Report Type: Spontaneous
  Country: US (occurrence: US)
  Receive Date: 20160322
  Receipt Date: 20160322
  Transmission Date: 20160526
  Serious: No
  Sender: FDA-Public Use
  Company Number: US-SA-2015SA080803

PATIENT
  Age: 93 Year
  Sex: Female

DRUGS (3)
  1. NASACORT ALLERGY 24HR [Suspect]
     Active Substance: TRIAMCINOLONE ACETONIDE
     Indication: RHINORRHOEA
     Dosage: PRODUCT START 5-6 DAYS AGO,?DOSE: 2 SPRAYS/ SQUIRTS IN EACH NOSTRI ONCE DAILY AT NIGHT.
     Route: 065
  2. NASACORT ALLERGY 24HR [Suspect]
     Active Substance: TRIAMCINOLONE ACETONIDE
     Indication: MULTIPLE ALLERGIES
     Dosage: PRODUCT START 5-6 DAYS AGO,?DOSE: 2 SPRAYS/ SQUIRTS IN EACH NOSTRI ONCE DAILY AT NIGHT.
     Route: 065
  3. NASACORT ALLERGY 24HR [Suspect]
     Active Substance: TRIAMCINOLONE ACETONIDE
     Indication: SNEEZING
     Dosage: PRODUCT START 5-6 DAYS AGO,?DOSE: 2 SPRAYS/ SQUIRTS IN EACH NOSTRI ONCE DAILY AT NIGHT.
     Route: 065

REACTIONS (1)
  - Somnolence [Unknown]
